FAERS Safety Report 14701029 (Version 1)
Quarter: 2018Q1

REPORT INFORMATION
  Report Type: Spontaneous
  Country: US (occurrence: US)
  Receive Date: 20180328
  Receipt Date: 20180328
  Transmission Date: 20180509
  Serious: Yes (Hospitalization)
  Sender: FDA-Public Use
  Company Number: None

PATIENT
  Age: 75 Year
  Sex: Male
  Weight: 100.43 kg

DRUGS (3)
  1. CARVEDILOL. [Suspect]
     Active Substance: CARVEDILOL
     Indication: CARDIAC FAILURE CONGESTIVE
     Route: 048
     Dates: start: 20120806, end: 20180308
  2. CARVEDILOL. [Suspect]
     Active Substance: CARVEDILOL
     Indication: HYPERTENSION
     Route: 048
     Dates: start: 20120806, end: 20180308
  3. CARVEDILOL. [Suspect]
     Active Substance: CARVEDILOL
     Indication: CORONARY ARTERY DISEASE
     Route: 048
     Dates: start: 20120806, end: 20180308

REACTIONS (3)
  - Syncope [None]
  - Drug effect incomplete [None]
  - Bradycardia [None]

NARRATIVE: CASE EVENT DATE: 20180308
